FAERS Safety Report 13064273 (Version 1)
Quarter: 2016Q4

REPORT INFORMATION
  Report Type: Spontaneous
  Country: US (occurrence: US)
  Receive Date: 20161223
  Receipt Date: 20161223
  Transmission Date: 20170207
  Serious: Yes (Disabling, Other)
  Sender: FDA-Public Use
  Company Number: None

PATIENT
  Age: 34 Year
  Sex: Male
  Weight: 90 kg

DRUGS (1)
  1. BUPROPION XL [Suspect]
     Active Substance: BUPROPION
     Indication: MAJOR DEPRESSION
     Dates: start: 20161210, end: 20161216

REACTIONS (5)
  - Drug ineffective [None]
  - Depressive symptom [None]
  - Impaired work ability [None]
  - Product quality issue [None]
  - Marital problem [None]

NARRATIVE: CASE EVENT DATE: 20161219
